FAERS Safety Report 20924806 (Version 5)
Quarter: 2023Q1

REPORT INFORMATION
  Report Type: Spontaneous
  Country: US (occurrence: US)
  Receive Date: 20220607
  Receipt Date: 20230313
  Transmission Date: 20230418
  Serious: No
  Sender: FDA-Public Use
  Company Number: US-PHARMAESSENTIA CORPORATION-US-2022-PEC-000605

PATIENT

DRUGS (5)
  1. BESREMI [Interacting]
     Active Substance: ROPEGINTERFERON ALFA-2B-NJFT
     Indication: Polycythaemia vera
     Dosage: 50 MCG, ONCE EVERY 4 WEEKS (Q4WEEKS)
     Route: 058
     Dates: start: 20220220
  2. BESREMI [Interacting]
     Active Substance: ROPEGINTERFERON ALFA-2B-NJFT
     Dosage: 50 MICROGRAM
     Route: 058
     Dates: start: 202204
  3. BESREMI [Interacting]
     Active Substance: ROPEGINTERFERON ALFA-2B-NJFT
     Dosage: 25 MCG, Q2W
     Route: 058
  4. BESREMI [Interacting]
     Active Substance: ROPEGINTERFERON ALFA-2B-NJFT
     Dosage: 25 MCG, EVERY 4 WEEKS
     Route: 058
     Dates: start: 20221130
  5. BUSULFAN [Interacting]
     Active Substance: BUSULFAN
     Indication: Product used for unknown indication
     Dosage: UNK
     Route: 065

REACTIONS (7)
  - Off label use [Unknown]
  - Neutrophil count decreased [Not Recovered/Not Resolved]
  - White blood cell count decreased [Unknown]
  - Platelet count decreased [Not Recovered/Not Resolved]
  - Red blood cell count decreased [Unknown]
  - Labelled drug-drug interaction issue [Unknown]
  - Full blood count decreased [Not Recovered/Not Resolved]
